FAERS Safety Report 4623994-8 (Version None)
Quarter: 2005Q1

REPORT INFORMATION
  Report Type: 
  Country: None (occurrence: None)
  Receive Date: 20050331
  Receipt Date: 20050325
  Transmission Date: 20050727
  Serious: Yes (Hospitalization)
  Sender: FDA-Public Use
  Company Number: US-JNJFOC-20050306510

PATIENT
  Sex: Male

DRUGS (4)
  1. MS PEPCID AC [Suspect]
     Indication: CHEST PAIN
  2. MS PEPCID AC [Suspect]
  3. NORVASC [Concomitant]
  4. LIPITOR [Concomitant]

REACTIONS (5)
  - APHONIA [None]
  - BLOOD POTASSIUM DECREASED [None]
  - DYSPHONIA [None]
  - PRURITUS [None]
  - SWELLING FACE [None]
